FAERS Safety Report 8422997-5 (Version None)
Quarter: 2012Q2

REPORT INFORMATION
  Report Type: 
  Country: None (occurrence: None)
  Receive Date: 20120608
  Receipt Date: 20120531
  Transmission Date: 20120825
  Serious: Yes (Hospitalization, Other)
  Sender: FDA-Public Use
  Company Number: NL-GENZYME-CLOF-1002168

PATIENT
  Sex: Male
  Weight: 82 kg

DRUGS (4)
  1. CLOFARABINE [Suspect]
     Indication: ACUTE MYELOID LEUKAEMIA
     Dosage: 18 MG, UNK
     Route: 042
     Dates: start: 20111028, end: 20111101
  2. CYTARABINE [Suspect]
     Indication: ACUTE MYELOID LEUKAEMIA
     Dosage: UNK
     Route: 042
  3. CYTARABINE [Suspect]
     Dosage: 1850 MG, BID
     Route: 042
     Dates: start: 20111028, end: 20111102
  4. AMSACRINE [Suspect]
     Indication: ACUTE MYELOID LEUKAEMIA
     Dosage: 220 MG, UNK
     Route: 042
     Dates: start: 20111031, end: 20111102

REACTIONS (4)
  - CENTRAL NERVOUS SYSTEM HAEMORRHAGE [None]
  - SEPTIC SHOCK [None]
  - MULTI-ORGAN FAILURE [None]
  - PANCYTOPENIA [None]
